FAERS Safety Report 8210060 (Version 2)
Quarter: 2012Q4

REPORT INFORMATION
  Report Type: 
  Country: US (occurrence: US)
  Receive Date: 20111028
  Receipt Date: 20121023
  Transmission Date: 20130627
  Serious: No
  Sender: FDA-Public Use
  Company Number: US-AMGEN-USASP2010012464

PATIENT
  Age: 44 Year
  Sex: Male
  Weight: 95.24 kg

DRUGS (1)
  1. ENBREL [Suspect]
     Dosage: 50 mg, 2 times/wk
     Dates: start: 20101215

REACTIONS (3)
  - Eye pain [Unknown]
  - Pyrexia [Recovering/Resolving]
  - Injection site discomfort [Recovered/Resolved]
